FAERS Safety Report 12083676 (Version 1)
Quarter: 2016Q1

REPORT INFORMATION
  Report Type: Spontaneous
  Country: US (occurrence: None)
  Receive Date: 20160216
  Receipt Date: 20160216
  Transmission Date: 20160526
  Serious: Yes (Hospitalization)
  Sender: FDA-Public Use
  Company Number: None

PATIENT
  Age: 58 Year
  Sex: Female
  Weight: 56.6 kg

DRUGS (12)
  1. FLUTICASONE (FLONASE) [Concomitant]
  2. CELEXA [Concomitant]
     Active Substance: CITALOPRAM HYDROBROMIDE
  3. NYSTATIN-TRIMACINOLONE (MYCOLOG) [Concomitant]
  4. GABAPENTIN (NEURONTIN) [Concomitant]
  5. NORTRIPTYLINE (PAMELOR) [Concomitant]
  6. POTASSIUM SUPPLEMENTATION [Concomitant]
  7. OXYMETAZOLINE (AFRIN) [Concomitant]
  8. AVELOX [Suspect]
     Active Substance: MOXIFLOXACIN HYDROCHLORIDE
     Indication: PNEUMONIA
     Route: 048
     Dates: start: 20150426, end: 20150501
  9. LORAZEPAM (ATIVAN) [Concomitant]
  10. TRIMETHOPRIM (TRIMPEX) [Concomitant]
  11. LIORESAL [Concomitant]
     Active Substance: BACLOFEN
  12. MOXIFLOXACIN (AVELOX) [Concomitant]

REACTIONS (1)
  - Clostridium difficile infection [None]

NARRATIVE: CASE EVENT DATE: 20150429
